FAERS Safety Report 8352739-3 (Version None)
Quarter: 2012Q2

REPORT INFORMATION
  Report Type: 
  Country: None (occurrence: None)
  Receive Date: 20120511
  Receipt Date: 20081017
  Transmission Date: 20120825
  Serious: No
  Sender: FDA-Public Use
  Company Number: US-TEVA-2008000360

PATIENT
  Age: 71 Year
  Sex: Male
  Weight: 95.34 kg

DRUGS (2)
  1. TREANDA [Suspect]
     Indication: CHRONIC LYMPHOCYTIC LEUKAEMIA
     Route: 042
     Dates: start: 20080912, end: 20080913
  2. RITUXAN [Concomitant]
     Indication: CHRONIC LYMPHOCYTIC LEUKAEMIA
     Route: 042
     Dates: start: 20080912

REACTIONS (3)
  - PLATELET COUNT DECREASED [None]
  - RASH [None]
  - HAEMATOCRIT DECREASED [None]
